FAERS Safety Report 9280459 (Version 1)
Quarter: 2013Q2

REPORT INFORMATION
  Report Type: Spontaneous
  Country: US (occurrence: US)
  Receive Date: 20130509
  Receipt Date: 20130509
  Transmission Date: 20140414
  Serious: Yes (Other)
  Sender: FDA-Public Use
  Company Number: US-BAYER-2013-055380

PATIENT
  Age: 23 Year
  Sex: Female

DRUGS (4)
  1. YAZ [Suspect]
     Indication: PREMENSTRUAL DYSPHORIC DISORDER
  2. ATIVAN [Concomitant]
  3. NAPROXEN [Concomitant]
  4. VICODIN [Concomitant]

REACTIONS (1)
  - Pulmonary embolism [None]
